FAERS Safety Report 10228762 (Version 2)
Quarter: 2014Q3

REPORT INFORMATION
  Report Type: Spontaneous
  Country: US (occurrence: US)
  Receive Date: 20140610
  Receipt Date: 20140826
  Transmission Date: 20150326
  Serious: Yes (Hospitalization)
  Sender: FDA-Public Use
  Company Number: US-ELI_LILLY_AND_COMPANY-US201405010542

PATIENT
  Age: 56 Year
  Sex: Female

DRUGS (12)
  1. DIAZEPAM. [Concomitant]
     Active Substance: DIAZEPAM
  2. SIMETHICONE [Concomitant]
     Active Substance: DIMETHICONE\SILICON DIOXIDE\SIMETHICONE
     Dosage: UNK, PRN
     Route: 065
  3. DUROGESIC [Concomitant]
     Active Substance: FENTANYL
     Dosage: UNK, UNKNOWN
     Route: 065
  4. FAMOTIDINE. [Concomitant]
     Active Substance: FAMOTIDINE
     Dosage: 20 MG, PRN
     Route: 065
  5. FENTANYL. [Concomitant]
     Active Substance: FENTANYL
     Indication: NEURALGIA
     Dosage: UNK, UNKNOWN
     Dates: start: 2010
  6. NEFAZODONE [Interacting]
     Active Substance: NEFAZODONE
     Indication: DEPRESSION
     Dosage: UNK, UNKNOWN
     Route: 065
  7. CYMBALTA [Suspect]
     Active Substance: DULOXETINE HYDROCHLORIDE
     Indication: DEPRESSION
     Dosage: 30 MG, QD
     Route: 048
  8. CYMBALTA [Interacting]
     Active Substance: DULOXETINE HYDROCHLORIDE
     Dosage: 20 MG, BID
     Route: 048
  9. CYMBALTA [Interacting]
     Active Substance: DULOXETINE HYDROCHLORIDE
     Indication: NEURALGIA
     Dosage: 60 MG, TID
     Route: 048
     Dates: end: 2008
  10. CYMBALTA [Interacting]
     Active Substance: DULOXETINE HYDROCHLORIDE
     Dosage: 20 MG, QD
     Route: 048
     Dates: start: 20140516, end: 20140520
  11. CYMBALTA [Interacting]
     Active Substance: DULOXETINE HYDROCHLORIDE
     Dosage: 40 MG, EACH EVENING
     Route: 048
     Dates: start: 20140520
  12. MELATONIN [Concomitant]
     Active Substance: MELATONIN

REACTIONS (23)
  - Tinnitus [Unknown]
  - Drug interaction [Unknown]
  - Hip fracture [Unknown]
  - Pruritus [Not Recovered/Not Resolved]
  - Photosensitivity reaction [Unknown]
  - Rectocele [Unknown]
  - Palpitations [Unknown]
  - Constipation [Unknown]
  - Joint injury [Unknown]
  - Lethargy [Unknown]
  - Crying [Recovering/Resolving]
  - Pruritus [Unknown]
  - Prescribed overdose [Recovered/Resolved]
  - Depression [Unknown]
  - Feeling abnormal [Unknown]
  - Musculoskeletal stiffness [Recovered/Resolved]
  - Formication [Recovered/Resolved]
  - Drug intolerance [Unknown]
  - Headache [Unknown]
  - Feeling abnormal [Unknown]
  - Vision blurred [Unknown]
  - Sleep disorder [Unknown]
  - Piloerection [Recovered/Resolved]

NARRATIVE: CASE EVENT DATE: 2006
